FAERS Safety Report 5601272-8 (Version None)
Quarter: 2008Q1

REPORT INFORMATION
  Report Type: 
  Country: None (occurrence: None)
  Receive Date: 20080124
  Receipt Date: 20080118
  Transmission Date: 20080703
  Serious: Yes (Other)
  Sender: FDA-Public Use
  Company Number: A0704121A

PATIENT
  Age: 66 Year
  Sex: Female

DRUGS (10)
  1. ADVAIR DISKUS 100/50 [Suspect]
     Indication: DRUG USE FOR UNKNOWN INDICATION
     Dosage: 1PUFF TWICE PER DAY
     Route: 055
     Dates: start: 20071101
  2. MAXAIR [Concomitant]
  3. LEVAQUIN [Concomitant]
  4. NASACORT [Concomitant]
  5. ASTELIN [Concomitant]
  6. ALLEGRA [Concomitant]
  7. CELEXA [Concomitant]
  8. MULTI-VITAMIN [Concomitant]
  9. STEROID [Concomitant]
  10. STEROID [Concomitant]

REACTIONS (4)
  - BRONCHITIS [None]
  - CONJUNCTIVITIS [None]
  - INFLAMMATION [None]
  - PNEUMONIA [None]
